FAERS Safety Report 17428314 (Version 1)
Quarter: 2020Q1

REPORT INFORMATION
  Report Type: Spontaneous
  Country: US (occurrence: US)
  Receive Date: 20200214
  Receipt Date: 20200214
  Transmission Date: 20200409
  Serious: Yes (Other)
  Sender: FDA-Public Use
  Company Number: None

PATIENT
  Age: 21 Year
  Sex: Female
  Weight: 69.85 kg

DRUGS (1)
  1. NEXPLANON [Suspect]
     Active Substance: ETONOGESTREL
     Dates: start: 20191210, end: 20200214

REACTIONS (3)
  - Pregnancy with implant contraceptive [None]
  - Abortion spontaneous [None]
  - Vaginal haemorrhage [None]

NARRATIVE: CASE EVENT DATE: 20200211
